FAERS Safety Report 16930361 (Version 1)
Quarter: 2019Q4

REPORT INFORMATION
  Report Type: Spontaneous
  Country: DK (occurrence: DK)
  Receive Date: 20191017
  Receipt Date: 20191017
  Transmission Date: 20200122
  Serious: Yes (Hospitalization)
  Sender: FDA-Public Use
  Company Number: DK-TEVA-2019-DK-1122039

PATIENT
  Age: 78 Year
  Sex: Male
  Weight: 70 kg

DRUGS (18)
  1. DIAZEPAM. [Suspect]
     Active Substance: DIAZEPAM
     Dosage: 2 MILLIGRAM, TWICE DAILY
  2. SIMVASTATIN. [Interacting]
     Active Substance: SIMVASTATIN
     Dosage: 40 MILLIGRAM, ONCE DAILY
     Route: 048
  3. IMOVANE [Suspect]
     Active Substance: ZOPICLONE
     Dosage: 7.5 MILLIGRAM, ONCE DAILY
  4. FURIX (FUROSEMIDE) [Suspect]
     Active Substance: FUROSEMIDE
     Dosage: 250 MILLIGRAM, TWICE DAILY
  5. PAMOL [Suspect]
     Active Substance: ACETAMINOPHEN
     Dosage: 1 GRAM, 4 TIMES DAILY
  6. CLOPIDOGREL [Suspect]
     Active Substance: CLOPIDOGREL BISULFATE
     Dosage: 75 MILLIGRAM, ONCE DAILY
  7. SYMBICORT [Suspect]
     Active Substance: BUDESONIDE\FORMOTEROL FUMARATE DIHYDRATE
     Dosage: UNK, ONCE DAILY
  8. ARANESP [Suspect]
     Active Substance: DARBEPOETIN ALFA
     Dosage: 40 MG E.S (NOT FURTHER SPECIFIED)
  9. HJERDYL [Suspect]
     Active Substance: ASPIRIN
     Dosage: 75 MILLIGRAM, ONCE DAILY
  10. METFORMIN [Suspect]
     Active Substance: METFORMIN HYDROCHLORIDE
     Dosage: 500 MILLIGRAM, TWICE DAILY
  11. MAREVAN [Suspect]
     Active Substance: WARFARIN SODIUM
     Dosage: UNK
  12. NITROGLYCERIN. [Suspect]
     Active Substance: NITROGLYCERIN
     Dosage: UNK, AS NECESSARY
  13. MAGNESIA [Suspect]
     Active Substance: MAGNESIUM HYDROXIDE
     Dosage: 500 MILLIGRAM, TWICE DAILY
  14. VERAPAMIL [Interacting]
     Active Substance: VERAPAMIL HYDROCHLORIDE
     Dosage: 120 MILLIGRAM, ONCE DAILY
  15. CARDOPAX [Suspect]
     Active Substance: ISOSORBIDE DINITRATE
     Dosage: 40 MILLIGRAM, ONCE DAILY
  16. DIGOXIN. [Suspect]
     Active Substance: DIGOXIN
     Dosage: 62.5 MICROGRAM, THREE TIMES DAILY
  17. IRON (UNSPECIFIED) [Suspect]
     Active Substance: IRON
     Dosage: 1 X 2 (NOT FURTHER SPECIFIED)
  18. SPIRIVA [Suspect]
     Active Substance: TIOTROPIUM BROMIDE MONOHYDRATE
     Dosage: UNK, ONCE DAILY

REACTIONS (6)
  - Supraventricular tachycardia [Unknown]
  - Normochromic normocytic anaemia [Unknown]
  - Fatigue [Unknown]
  - Dyspnoea [Unknown]
  - Malaise [Unknown]
  - Drug interaction [Unknown]

NARRATIVE: CASE EVENT DATE: 20190510
